FAERS Safety Report 13042807 (Version 1)
Quarter: 2016Q4

REPORT INFORMATION
  Report Type: Report from Study
  Country: US (occurrence: US)
  Receive Date: 20161219
  Receipt Date: 20161219
  Transmission Date: 20170207
  Serious: Yes (Other)
  Sender: FDA-Public Use
  Company Number: US-GILEAD-2016-0247167

PATIENT
  Age: 77 Year
  Sex: Female

DRUGS (2)
  1. RANOLAZINE [Suspect]
     Active Substance: RANOLAZINE
     Dosage: 1 EXTENDED RELEASE TABLET PER DAY IN THE MORNING
     Route: 048
  2. RANOLAZINE [Suspect]
     Active Substance: RANOLAZINE
     Indication: ANGINA PECTORIS
     Dosage: 500 MG, UNK
     Route: 048
     Dates: start: 2008

REACTIONS (5)
  - Product use issue [Unknown]
  - Cardiac disorder [Unknown]
  - Inability to afford medication [Unknown]
  - Angina pectoris [Unknown]
  - Intentional underdose [Unknown]
